FAERS Safety Report 4476587-X (Version None)
Quarter: 2004Q4

REPORT INFORMATION
  Report Type: 
  Country: None (occurrence: None)
  Receive Date: 20041013
  Receipt Date: 20040924
  Transmission Date: 20050328
  Serious: Yes (Hospitalization)
  Sender: FDA-Public Use
  Company Number: USA040979255

PATIENT
  Age: 92 Year
  Sex: Female
  Weight: 55 kg

DRUGS (1)
  1. FORTEO [Suspect]
     Indication: BONE DISORDER
     Dosage: 20 UG/1 DAY
     Dates: start: 20040826

REACTIONS (5)
  - ASTHENIA [None]
  - CARDIAC DISORDER [None]
  - CONDITION AGGRAVATED [None]
  - DYSPNOEA EXACERBATED [None]
  - PHARMACEUTICAL PRODUCT COMPLAINT [None]
